FAERS Safety Report 8742084 (Version 5)
Quarter: 2012Q4

REPORT INFORMATION
  Report Type: Report from Study
  Country: US (occurrence: US)
  Receive Date: 20120824
  Receipt Date: 20120911
  Transmission Date: 20130627
  Serious: Yes (Hospitalization)
  Sender: FDA-Public Use
  Company Number: US-JNJFOC-20120810650

PATIENT
  Age: 19 Year
  Sex: Male
  Weight: 80.9 kg

DRUGS (5)
  1. REMICADE [Suspect]
     Indication: CROHN^S DISEASE
     Route: 042
     Dates: start: 20120711
  2. REMICADE [Suspect]
     Indication: CROHN^S DISEASE
     Route: 042
     Dates: start: 20100721
  3. IRON [Concomitant]
  4. CALCIUM WITH VITAMIN D [Concomitant]
  5. MULTIVITAMINS [Concomitant]

REACTIONS (4)
  - Subcutaneous abscess [Not Recovered/Not Resolved]
  - Hyponatraemia [Recovered/Resolved]
  - Gastroenteritis viral [Recovered/Resolved]
  - Dehydration [Recovered/Resolved]
